FAERS Safety Report 19279167 (Version 1)
Quarter: 2021Q2

REPORT INFORMATION
  Report Type: Spontaneous
  Country: GB (occurrence: GB)
  Receive Date: 20210520
  Receipt Date: 20210520
  Transmission Date: 20210717
  Serious: Yes (Life-Threatening)
  Sender: FDA-Public Use
  Company Number: GB-TEVA-2021-GB-1912897

PATIENT
  Age: 17 Year
  Sex: Male

DRUGS (7)
  1. EMERADE [Suspect]
     Active Substance: EPINEPHRINE BITARTRATE
     Dosage: 4 DOSES OF IM ADRENALINE (AUTO?INJECTOR) WERE ADMINISTERED OVER 20 MINUTES, ALTERNATING LIMBS FOR...
     Route: 065
  2. SALINE ORAL OTC [Suspect]
     Active Substance: SODIUM CHLORIDE
     Indication: ANAPHYLACTIC REACTION
     Dosage: 500ML
     Route: 042
  3. SALBUTAMOL [Suspect]
     Active Substance: ALBUTEROL
     Indication: ANAPHYLACTIC REACTION
     Route: 055
  4. CHLORPHENAMINE [Suspect]
     Active Substance: CHLORPHENIRAMINE MALEATE
     Indication: ANAPHYLACTIC REACTION
     Route: 042
  5. ADRENALINE [Suspect]
     Active Substance: EPINEPHRINE
     Indication: ANAPHYLACTIC REACTION
     Dosage: 0.1 UG/KG/MIN AT 40 MINUTES AFTER ONSET, A PERIPHERAL ADRENALINE INFUSION OF 0.1 MCG/KG/MIN WAS C...
     Route: 042
  6. EMERADE [Suspect]
     Active Substance: EPINEPHRINE BITARTRATE
     Indication: ANAPHYLACTIC REACTION
     Dosage: 4 DOSES WERE ADMINISTERED OVER 20 MINUTES, ALTERNATING LIMBS FOR INJECTION. AUTO?INJECTOR.  START...
     Route: 030
  7. HYDROCORTISONE. [Suspect]
     Active Substance: HYDROCORTISONE
     Indication: ANAPHYLACTIC REACTION
     Route: 042

REACTIONS (1)
  - Drug ineffective [Recovered/Resolved]
